FAERS Safety Report 15951318 (Version 2)
Quarter: 2019Q2

REPORT INFORMATION
  Report Type: Report from Study
  Country: US (occurrence: US)
  Receive Date: 20190211
  Receipt Date: 20190405
  Transmission Date: 20190711
  Serious: No
  Sender: FDA-Public Use
  Company Number: PHEH2019US005863

PATIENT
  Sex: Male

DRUGS (1)
  1. ENTRESTO [Suspect]
     Active Substance: SACUBITRIL\VALSARTAN
     Indication: PRODUCT USED FOR UNKNOWN INDICATION
     Dosage: 50 MG  (SACUBITRIL 24 AND VALSARTAN 26 MG), BID
     Route: 048

REACTIONS (5)
  - Cough [Unknown]
  - Influenza like illness [Unknown]
  - Dyspnoea [Unknown]
  - Dizziness [Unknown]
  - Hypersensitivity [Unknown]
